FAERS Safety Report 5417092-3 (Version None)
Quarter: 2007Q3

REPORT INFORMATION
  Report Type: 
  Country: None (occurrence: None)
  Receive Date: 20070718
  Receipt Date: 20060710
  Transmission Date: 20080115
  Serious: Yes (Hospitalization)
  Sender: FDA-Public Use
  Company Number: 2006064462

PATIENT
  Age: 64 Year
  Sex: Female
  Weight: 75.7507 kg

DRUGS (1)
  1. CELEBREX [Suspect]
     Indication: ARTHRITIS
     Dosage: 400 MG (200 MG,2 IN 1 D)
     Dates: start: 20040701, end: 20041215

REACTIONS (2)
  - CEREBROVASCULAR ACCIDENT [None]
  - DIABETES MELLITUS [None]
